FAERS Safety Report 19401772 (Version 1)
Quarter: 2021Q2

REPORT INFORMATION
  Report Type: Spontaneous
  Country: US (occurrence: US)
  Receive Date: 20210610
  Receipt Date: 20210610
  Transmission Date: 20210717
  Serious: Yes (Other)
  Sender: FDA-Public Use
  Company Number: US-PFIZER INC-2021611712

PATIENT
  Age: 79 Year
  Sex: Female

DRUGS (4)
  1. IBRANCE [Suspect]
     Active Substance: PALBOCICLIB
     Dosage: 100 MG, D1 ?21  EVERY 4 WEEKS
     Dates: start: 20191218
  2. LETROZOLE. [Suspect]
     Active Substance: LETROZOLE
     Dosage: UNK
     Dates: start: 201903
  3. IBRANCE [Suspect]
     Active Substance: PALBOCICLIB
     Indication: BREAST CANCER STAGE IV
     Dosage: UNK
     Dates: start: 201903, end: 201910
  4. IBRANCE [Suspect]
     Active Substance: PALBOCICLIB
     Dosage: 75 MG, EVERY 4 WEEKS D1 ?21
     Dates: start: 20200218

REACTIONS (8)
  - Neuropathy peripheral [Unknown]
  - Neoplasm progression [Unknown]
  - Pneumonitis [Unknown]
  - Pulmonary mass [Unknown]
  - Bronchial wall thickening [Unknown]
  - Musculoskeletal chest pain [Unknown]
  - Second primary malignancy [Unknown]
  - Follicular lymphoma stage I [Unknown]
